FAERS Safety Report 21336393 (Version 1)
Quarter: 2022Q3

REPORT INFORMATION
  Report Type: Spontaneous
  Country: FR (occurrence: FR)
  Receive Date: 20220915
  Receipt Date: 20220915
  Transmission Date: 20221026
  Serious: Yes (Life-Threatening, Hospitalization)
  Sender: FDA-Public Use
  Company Number: None

PATIENT
  Age: 83 Year
  Sex: Female
  Weight: 58 kg

DRUGS (6)
  1. IMATINIB MESYLATE [Suspect]
     Active Substance: IMATINIB MESYLATE
     Indication: Metastatic malignant melanoma
     Dosage: IMATINIB (MESILATE D^), UNIT DOSE : 400 MG, FREQUENCY TIME : 1 DAY, DURATION: 42 DAYS
     Dates: start: 20220316, end: 20220427
  2. CETIRIZINE [Suspect]
     Active Substance: CETIRIZINE HYDROCHLORIDE
     Indication: Seasonal allergy
     Dosage: CETIRIZINE (DICHLORHYDRATE DE), THERAPY END DATE : NASK, FREQUENCY TIME : 12 HRS, UNIT DOSE : 10 MG
     Dates: start: 20220316
  3. LOVENOX [Suspect]
     Active Substance: ENOXAPARIN SODIUM
     Indication: Thrombosis prophylaxis
     Dosage: LOVENOX 4,000 ANTI-XA IU/0.4 ML, SOLUTION FOR INJECTION IN CARTRIDGE, UNIT DOSE : 0.4 MG, FREQUENCY
     Dates: start: 20220221
  4. OPDIVO [Suspect]
     Active Substance: NIVOLUMAB
     Indication: Metastatic malignant melanoma
     Dosage: STRENGTH: 10 MG/ML , UNIT DOSE: 480 MG, FREQUENCY TIME : 4 WEEK, DURATION : 166 DAYS
     Dates: start: 20211027, end: 20220411
  5. TELMISARTAN [Concomitant]
     Active Substance: TELMISARTAN
     Indication: Hypertension
     Dosage: UNIT DOSE: 40 MG, FREQUENCY TIME : 1 DAY
     Dates: start: 2021
  6. ACETAMINOPHEN [Concomitant]
     Active Substance: ACETAMINOPHEN
     Indication: Pain
     Dosage: 1 TABLET 3 TIMES A DAY IF NEEDED

REACTIONS (1)
  - Agranulocytosis [Recovering/Resolving]

NARRATIVE: CASE EVENT DATE: 20220427
